FAERS Safety Report 7412131-2 (Version None)
Quarter: 2011Q2

REPORT INFORMATION
  Report Type: 
  Country: None (occurrence: None)
  Receive Date: 20110413
  Receipt Date: 20110321
  Transmission Date: 20111010
  Serious: Yes (Other)
  Sender: FDA-Public Use
  Company Number: US-BAYER-201039688NA

PATIENT
  Age: 35 Year
  Sex: Female
  Weight: 63.492 kg

DRUGS (6)
  1. VIOXX [Concomitant]
     Indication: MIGRAINE
  2. TRAMADOL [Concomitant]
     Dosage: UNK
     Dates: start: 20000101
  3. VITAMIN D [Concomitant]
  4. YASMIN [Suspect]
     Indication: CONTRACEPTION
     Dosage: UNK UNK, UNK
     Route: 048
     Dates: start: 19980101, end: 20040101
  5. LOVAZA [Concomitant]
  6. ASPIRIN [Concomitant]

REACTIONS (2)
  - DEEP VEIN THROMBOSIS [None]
  - THROMBOSIS [None]
